FAERS Safety Report 6474821-8 (Version None)
Quarter: 2009Q4

REPORT INFORMATION
  Report Type: 
  Country: None (occurrence: None)
  Receive Date: 20091130
  Receipt Date: 20091112
  Transmission Date: 20100525
  Serious: Yes (Life-Threatening, Congenital Anomaly, Other)
  Sender: FDA-Public Use
  Company Number: IDA-00288

PATIENT
  Sex: Female

DRUGS (2)
  1. INDERAL [Suspect]
     Indication: HEART RATE INCREASED
     Dosage: 1.8 MG QD, 2.8 MG QD, 3.6 MG QD, 4 MG QD, 5 MG QD   ORAL
     Route: 048
     Dates: end: 20091109
  2. INDERAL [Suspect]
     Indication: HEART RATE INCREASED
     Dosage: 1.8 MG QD, 2.8 MG QD, 3.6 MG QD, 4 MG QD, 5 MG QD   ORAL
     Route: 048
     Dates: start: 20091014

REACTIONS (1)
  - LIVER FUNCTION TEST ABNORMAL [None]
